FAERS Safety Report 12053236 (Version 1)
Quarter: 2016Q1

REPORT INFORMATION
  Report Type: Report from Study
  Country: US (occurrence: US)
  Receive Date: 20160209
  Receipt Date: 20160209
  Transmission Date: 20160526
  Serious: No
  Sender: FDA-Public Use
  Company Number: US-ABBVIE-15P-163-1458174-00

PATIENT
  Sex: Female

DRUGS (1)
  1. HUMIRA [Suspect]
     Active Substance: ADALIMUMAB
     Indication: CROHN^S DISEASE
     Route: 065
     Dates: start: 20150617

REACTIONS (10)
  - Pyrexia [Recovered/Resolved]
  - Volume blood decreased [Unknown]
  - Malaise [Unknown]
  - Constipation [Unknown]
  - Abdominal pain upper [Recovered/Resolved]
  - Oropharyngeal pain [Not Recovered/Not Resolved]
  - Rectal haemorrhage [Unknown]
  - Crohn^s disease [Unknown]
  - Chills [Recovered/Resolved]
  - Hypersensitivity [Unknown]

NARRATIVE: CASE EVENT DATE: 2015
